FAERS Safety Report 17975619 (Version 1)
Quarter: 2020Q3

REPORT INFORMATION
  Report Type: Spontaneous
  Country: US (occurrence: US)
  Receive Date: 20200702
  Receipt Date: 20200702
  Transmission Date: 20201103
  Serious: No
  Sender: FDA-Public Use
  Company Number: US-ELI_LILLY_AND_COMPANY-US202006012773

PATIENT
  Sex: Male

DRUGS (3)
  1. NOVOLIN N [Concomitant]
     Active Substance: INSULIN HUMAN
     Indication: DIABETES MELLITUS
     Dosage: 50 U, IN AM
  2. HUMALOG [Suspect]
     Active Substance: INSULIN LISPRO
     Indication: PRODUCT USED FOR UNKNOWN INDICATION
     Dosage: 9?11 U, SLIDING SCALE WITH MEALS
     Route: 065
  3. NOVOLIN N [Concomitant]
     Active Substance: INSULIN HUMAN
     Dosage: 40 U, IN THE PM

REACTIONS (1)
  - Blood glucose increased [Not Recovered/Not Resolved]
